FAERS Safety Report 6315618-9 (Version None)
Quarter: 2009Q3

REPORT INFORMATION
  Report Type: 
  Country: None (occurrence: None)
  Receive Date: 20090818
  Receipt Date: 20090811
  Transmission Date: 20100115
  Serious: Yes (Other)
  Sender: FDA-Public Use
  Company Number: 2009-200588-NL

PATIENT

DRUGS (4)
  1. ORGARAN [Suspect]
     Indication: PROPHYLAXIS
  2. URSODEOXVCHOLIC [Concomitant]
  3. TOCOPHEROL ACETATE [Concomitant]
  4. EICOSAPENTAENOIC ACID [Concomitant]

REACTIONS (1)
  - HAEMORRHAGE [None]
